FAERS Safety Report 25723720 (Version 4)
Quarter: 2025Q4

REPORT INFORMATION
  Report Type: Report from Study
  Country: RU (occurrence: RU)
  Receive Date: 20250825
  Receipt Date: 20251121
  Transmission Date: 20260117
  Serious: Yes (Death, Other)
  Sender: NOVARTIS
  Company Number: RU-002147023-NVSC2025RU099364

PATIENT
  Age: 84 Year
  Sex: Female
  Weight: 64 kg

DRUGS (2)
  1. KISQALI [Suspect]
     Active Substance: RIBOCICLIB SUCCINATE
     Indication: Breast cancer
     Dosage: 600 MG, QD (DAY 1-21, CYCLE 28 DAYS)
     Route: 048
     Dates: start: 20241122, end: 20250115
  2. NIFEDIPINE [Concomitant]
     Active Substance: NIFEDIPINE
     Indication: Product used for unknown indication
     Dosage: 10 MG, QD
     Route: 065
     Dates: end: 20250725

REACTIONS (6)
  - Death [Fatal]
  - Hip fracture [Recovered/Resolved]
  - Femoral neck fracture [Recovered/Resolved]
  - Neutropenia [Recovered/Resolved]
  - Pneumonia [Recovered/Resolved]
  - Pneumonia [Unknown]

NARRATIVE: CASE EVENT DATE: 20241213
